FAERS Safety Report 25565559 (Version 2)
Quarter: 2025Q3

REPORT INFORMATION
  Report Type: Spontaneous
  Country: US (occurrence: US)
  Receive Date: 20250716
  Receipt Date: 20250802
  Transmission Date: 20251020
  Serious: No
  Sender: MERCK SHARP & DOHME LLC
  Company Number: US-009507513-2300640

PATIENT
  Sex: Female
  Weight: 78.925 kg

DRUGS (23)
  1. WINREVAIR [Suspect]
     Active Substance: SOTATERCEPT-CSRK
     Indication: Product used for unknown indication
  2. WINREVAIR [Suspect]
     Active Substance: SOTATERCEPT-CSRK
  3. WINREVAIR [Suspect]
     Active Substance: SOTATERCEPT-CSRK
  4. WINREVAIR [Suspect]
     Active Substance: SOTATERCEPT-CSRK
  5. ORENITRAM [Suspect]
     Active Substance: TREPROSTINIL
     Indication: Pulmonary arterial hypertension
     Dosage: STRENGTH: 1 MG
     Route: 048
  6. ORENITRAM [Suspect]
     Active Substance: TREPROSTINIL
     Indication: Pulmonary arterial hypertension
     Route: 048
     Dates: start: 20210728
  7. ATORVASTATIN CALCIUM [Concomitant]
     Active Substance: ATORVASTATIN CALCIUM
  8. IMODIUM [Concomitant]
     Active Substance: LOPERAMIDE HYDROCHLORIDE
  9. PANTOPRAZOLE SODIUM [Concomitant]
     Active Substance: PANTOPRAZOLE SODIUM
  10. TRACLEER [Concomitant]
     Active Substance: BOSENTAN
  11. LASIX [Concomitant]
     Active Substance: FUROSEMIDE
  12. Wellbutrin xl (Bupropion hydrochloride) [Concomitant]
  13. POTASSIUM CHLORIDE [Concomitant]
     Active Substance: POTASSIUM CHLORIDE
  14. SILDENAFIL CITRATE [Concomitant]
     Active Substance: SILDENAFIL CITRATE
  15. Albuterol sulfate hfa (Salbutamol sulfate) [Concomitant]
  16. Metolazone (Metolazone) [Concomitant]
  17. Advair HFA (Fluticasone propionate, Salmeterol xinafoate) [Concomitant]
  18. OXYGEN [Concomitant]
     Active Substance: OXYGEN
  19. SPIRONOLACTONE [Concomitant]
     Active Substance: SPIRONOLACTONE
  20. Aspirin EC (Acetylsalicylic acid) [Concomitant]
  21. Moderna COVID-19 vaccine (Elasomeran) [Concomitant]
  22. Xopenex (Levosalbutamol hydrochloride) [Concomitant]
  23. Loratadine (Loratadine) [Concomitant]

REACTIONS (1)
  - Headache [Unknown]
